FAERS Safety Report 7533346-9 (Version None)
Quarter: 2011Q2

REPORT INFORMATION
  Report Type: 
  Country: None (occurrence: None)
  Receive Date: 20110608
  Receipt Date: 20041012
  Transmission Date: 20111010
  Serious: Yes (Other)
  Sender: FDA-Public Use
  Company Number: PHNR2004AU01491

PATIENT
  Sex: Female

DRUGS (1)
  1. CLOZAPINE [Suspect]
     Dosage: 37.5 MG, QD
     Dates: start: 20040826, end: 20041006

REACTIONS (2)
  - GASTRIC HAEMORRHAGE [None]
  - NAUSEA [None]
